FAERS Safety Report 19408000 (Version 1)
Quarter: 2021Q2

REPORT INFORMATION
  Report Type: Spontaneous
  Country: AU (occurrence: AU)
  Receive Date: 20210611
  Receipt Date: 20210611
  Transmission Date: 20210717
  Serious: Yes (Hospitalization, Other)
  Sender: FDA-Public Use
  Company Number: AU-ORGANON-2005AUS007975

PATIENT
  Age: 29 Year
  Sex: Female

DRUGS (1)
  1. IMPLANON NXT [Suspect]
     Active Substance: ETONOGESTREL
     Dosage: 1 IMPLANT, IN LEFT UPPER ARM
     Dates: start: 2017, end: 20200623

REACTIONS (7)
  - Complication of device removal [Recovered/Resolved]
  - Complication associated with device [Recovered/Resolved]
  - Device deployment issue [Recovered/Resolved]
  - General anaesthesia [Unknown]
  - Device issue [Recovered/Resolved]
  - Incorrect product administration duration [Unknown]
  - Device dislocation [Recovered/Resolved]

NARRATIVE: CASE EVENT DATE: 2017
